FAERS Safety Report 7992126-0 (Version None)
Quarter: 2011Q4

REPORT INFORMATION
  Report Type: 
  Country: None (occurrence: None)
  Receive Date: 20111219
  Receipt Date: 20110906
  Transmission Date: 20120403
  Serious: No
  Sender: FDA-Public Use
  Company Number: US-ASTRAZENECA-2011SE36287

PATIENT
  Age: 53 Year
  Sex: Male

DRUGS (2)
  1. CIPROFLOXACIN [Concomitant]
  2. CRESTOR [Suspect]
     Route: 048

REACTIONS (2)
  - BACTERIAL INFECTION [None]
  - PROSTATOMEGALY [None]
